FAERS Safety Report 11035975 (Version 2)
Quarter: 2015Q2

REPORT INFORMATION
  Report Type: Spontaneous
  Country: US (occurrence: US)
  Receive Date: 20150415
  Receipt Date: 20150525
  Transmission Date: 20150821
  Serious: No
  Sender: FDA-Public Use
  Company Number: US-JNJFOC-20140714272

PATIENT
  Sex: Male
  Weight: 72.58 kg

DRUGS (2)
  1. XARELTO [Suspect]
     Active Substance: RIVAROXABAN
     Indication: THROMBOSIS IN DEVICE
     Route: 048
     Dates: start: 201403
  2. ASPIRIN. [Suspect]
     Active Substance: ASPIRIN
     Indication: PRODUCT USED FOR UNKNOWN INDICATION
     Route: 048

REACTIONS (4)
  - Soft tissue haemorrhage [Unknown]
  - Mass [Unknown]
  - Off label use [Unknown]
  - Skin irritation [Unknown]

NARRATIVE: CASE EVENT DATE: 2014
